FAERS Safety Report 6740074-6 (Version None)
Quarter: 2010Q2

REPORT INFORMATION
  Report Type: 
  Country: None (occurrence: None)
  Receive Date: 20100525
  Receipt Date: 20100208
  Transmission Date: 20101027
  Serious: No
  Sender: FDA-Public Use
  Company Number: A0836721A

PATIENT
  Sex: Female

DRUGS (2)
  1. BACTROBAN [Suspect]
     Route: 045
     Dates: start: 20091201
  2. NO CONCURRENT MEDICATION [Concomitant]

REACTIONS (5)
  - BURNING SENSATION [None]
  - DYSGEUSIA [None]
  - ERYTHEMA [None]
  - PRODUCT QUALITY ISSUE [None]
  - SKIN ULCER [None]
